FAERS Safety Report 5391259-5 (Version None)
Quarter: 2007Q3

REPORT INFORMATION
  Report Type: 
  Country: None (occurrence: None)
  Receive Date: 20070717
  Receipt Date: 20070705
  Transmission Date: 20080115
  Serious: Yes (Other)
  Sender: FDA-Public Use
  Company Number: CIP07001288

PATIENT
  Age: 68 Year
  Sex: Female

DRUGS (7)
  1. ACTONEL [Suspect]
     Dosage: 35 MG ONCE WEEKLY, ORAL
     Route: 048
     Dates: start: 20020101
  2. DYNACIRC CR [Concomitant]
  3. SPIRONOLACTONE [Concomitant]
  4. SYNTHROID [Concomitant]
  5. CALCIUM (CALCIUM) [Concomitant]
  6. GLUCOSAMINE (GLUCOSAMINE) [Concomitant]
  7. CRANBERRY /01512301/ (VACCINIUM MACROCARPON) [Concomitant]

REACTIONS (4)
  - ARTHRALGIA [None]
  - GAIT DISTURBANCE [None]
  - JOINT RANGE OF MOTION DECREASED [None]
  - OSTEOARTHRITIS [None]
